FAERS Safety Report 9790704 (Version 2)
Quarter: 2013Q4

REPORT INFORMATION
  Report Type: Spontaneous
  Country: US (occurrence: US)
  Receive Date: 20131231
  Receipt Date: 20131231
  Transmission Date: 20140711
  Serious: Yes (Hospitalization, Other)
  Sender: FDA-Public Use
  Company Number: US-PFIZER INC-2012016720

PATIENT
  Age: 18 Year
  Sex: Female
  Weight: 69 kg

DRUGS (14)
  1. LO/OVRAL-28 [Suspect]
     Indication: CONTRACEPTION
     Dosage: UNK
     Dates: start: 20081125
  2. LO/OVRAL-28 [Suspect]
     Indication: MENSTRUAL CYCLE MANAGEMENT
  3. YAZ [Suspect]
     Indication: CONTRACEPTION
     Dosage: 1 DF, 1X/DAY
     Route: 048
     Dates: start: 20080819, end: 20081124
  4. YAZ [Suspect]
     Indication: MENSTRUAL CYCLE MANAGEMENT
  5. YASMIN [Suspect]
     Indication: CONTRACEPTION
     Dosage: 1 DF, 1X/DAY
     Route: 048
     Dates: start: 20080819, end: 20081124
  6. YASMIN [Suspect]
     Indication: MENSTRUAL CYCLE MANAGEMENT
  7. DOXYTAB [Concomitant]
     Dosage: 100 MG, UNK
     Dates: start: 20080818
  8. ERYTHROMYCIN [Concomitant]
     Dosage: UNK
  9. CLINDESSE [Concomitant]
     Dosage: UNK
  10. ZANTAC [Concomitant]
     Dosage: UNK
  11. ROXICET [Concomitant]
  12. CIPROFLOXACIN [Concomitant]
     Dosage: 500 MG, 2X/DAY
  13. ONDASETRON [Concomitant]
     Dosage: 400 MG, 3X/DAY
  14. ASPIRIN [Concomitant]

REACTIONS (4)
  - Cholelithiasis [Unknown]
  - Cholecystitis [Unknown]
  - Nausea [Recovered/Resolved]
  - Metrorrhagia [Recovered/Resolved]
